FAERS Safety Report 14875484 (Version 3)
Quarter: 2018Q3

REPORT INFORMATION
  Report Type: Report from Study
  Country: NL (occurrence: NL)
  Receive Date: 20180510
  Receipt Date: 20180820
  Transmission Date: 20181010
  Serious: Yes (Hospitalization, Other)
  Sender: FDA-Public Use
  Company Number: NL-GLAXOSMITHKLINE-NL2017159323

PATIENT
  Age: 54 Year
  Sex: Male
  Weight: 121.3 kg

DRUGS (10)
  1. TRANXENE [Suspect]
     Active Substance: CLORAZEPATE DIPOTASSIUM
     Indication: SUICIDE ATTEMPT
     Dosage: 60 MG, SINGLE
     Route: 048
  2. OXAZEPAM. [Suspect]
     Active Substance: OXAZEPAM
     Indication: SUICIDE ATTEMPT
     Dosage: 60 MG, SINGLE
     Route: 048
  3. BLINDED PLACEBO [Suspect]
     Active Substance: INVESTIGATIONAL PRODUCT
     Indication: CHRONIC OBSTRUCTIVE PULMONARY DISEASE
     Dosage: NO THERAPY RECEIVED
  4. BLINDED DANIRIXIN [Suspect]
     Active Substance: DANIRIXIN
     Indication: CHRONIC OBSTRUCTIVE PULMONARY DISEASE
     Dosage: NO THERAPY RECEIVED
  5. DICLOFENAC [Suspect]
     Active Substance: DICLOFENAC
     Indication: SUICIDE ATTEMPT
     Dosage: 150 MG, SINGLE
     Route: 048
  6. NAPROXEN. [Suspect]
     Active Substance: NAPROXEN
     Indication: SUICIDE ATTEMPT
     Dosage: 1500 MG, SINGLE
     Route: 048
  7. BLINDED ACTIGRAPH GT9X DEVICE [Suspect]
     Active Substance: DEVICE
     Indication: CHRONIC OBSTRUCTIVE PULMONARY DISEASE
     Dosage: NO THERAPY RECEIVED
  8. OMEPRAZOLE. [Suspect]
     Active Substance: OMEPRAZOLE
     Indication: SUICIDE ATTEMPT
  9. BLINDED PROPELLER HEALTH SENSOR DEVICE [Suspect]
     Active Substance: DEVICE
     Indication: CHRONIC OBSTRUCTIVE PULMONARY DISEASE
     Dosage: NO THERAPY RECEIVED
  10. QUETIAPINE. [Suspect]
     Active Substance: QUETIAPINE
     Indication: SUICIDE ATTEMPT
     Dosage: 100 MG, SINGLE
     Route: 048

REACTIONS (1)
  - Suicide attempt [Recovered/Resolved]

NARRATIVE: CASE EVENT DATE: 20171011
